FAERS Safety Report 8885832 (Version 1)
Quarter: 2012Q4

REPORT INFORMATION
  Report Type: 
  Country: NL (occurrence: NL)
  Receive Date: 20121105
  Receipt Date: 20121105
  Transmission Date: 20130627
  Serious: Yes (Other)
  Sender: FDA-Public Use
  Company Number: PHHY2012NL100513

PATIENT
  Age: 84 Year
  Sex: Female

DRUGS (6)
  1. ACLASTA [Suspect]
     Indication: OSTEOPOROSIS
     Dosage: 5 mg, UNK
     Route: 042
     Dates: start: 20121101
  2. METFORMIN [Concomitant]
  3. FUROSEMIDE [Concomitant]
  4. LOSARTAN POTASSIUM [Concomitant]
  5. CALCI CHEW [Concomitant]
  6. VERAPAMIL [Concomitant]

REACTIONS (3)
  - Fall [Recovered/Resolved]
  - Dizziness [Recovered/Resolved]
  - Headache [Recovered/Resolved]
